FAERS Safety Report 6290578-8 (Version None)
Quarter: 2009Q3

REPORT INFORMATION
  Report Type: 
  Country: None (occurrence: None)
  Receive Date: 20090728
  Receipt Date: 20090728
  Transmission Date: 20100115
  Serious: Yes (Hospitalization)
  Sender: FDA-Public Use
  Company Number: None

PATIENT
  Age: 53 Year
  Sex: Male

DRUGS (2)
  1. PEGINTERFERON/RIBAVIRIN [Suspect]
     Indication: HEPATITIS C
     Dosage: 1 UNITS QWEEK SQ
     Route: 058
     Dates: start: 20081219, end: 20090612
  2. RIBAVIRIN [Suspect]
     Dosage: 200 MG QID PO
     Route: 048
     Dates: start: 20090601, end: 20090612

REACTIONS (5)
  - ANAEMIA [None]
  - HAEMOGLOBIN DECREASED [None]
  - PLATELET COUNT DECREASED [None]
  - RED BLOOD CELL COUNT DECREASED [None]
  - THROMBOCYTOPENIA [None]
